FAERS Safety Report 24640499 (Version 1)
Quarter: 2024Q4

REPORT INFORMATION
  Report Type: Other
  Country: FR (occurrence: FR)
  Receive Date: 20241120
  Receipt Date: 20241120
  Transmission Date: 20250115
  Serious: Yes (Hospitalization)
  Sender: ZYDUS PHARM
  Company Number: None

PATIENT

DRUGS (6)
  1. FINASTERIDE [Suspect]
     Active Substance: FINASTERIDE
     Indication: Benign prostatic hyperplasia
     Dosage: 5 MILLIGRAM, QD
     Route: 048
     Dates: start: 2019
  2. RAMIPRIL [Suspect]
     Active Substance: RAMIPRIL
     Indication: Cardiac disorder
     Dosage: 3 MILLIGRAM, QD
     Route: 048
     Dates: start: 2019
  3. ALFUZOSIN HYDROCHLORIDE [Suspect]
     Active Substance: ALFUZOSIN HYDROCHLORIDE
     Indication: Benign prostatic hyperplasia
     Dosage: 10 MILLIGRAM, QD
     Route: 048
     Dates: start: 2019
  4. FUROSEMIDE [Suspect]
     Active Substance: FUROSEMIDE
     Indication: Cardiac disorder
     Dosage: 80 MILLIGRAM, QD
     Route: 048
     Dates: start: 2019
  5. ELIQUIS [Suspect]
     Active Substance: APIXABAN
     Indication: Cardiac disorder
     Dosage: 2 DOSAGE FORM, QD
     Route: 048
     Dates: start: 2019
  6. VYNDAQEL [Suspect]
     Active Substance: TAFAMIDIS MEGLUMINE
     Indication: Acquired ATTR amyloidosis
     Dosage: 1 DOSAGE FORM, QD
     Route: 048
     Dates: start: 20220101

REACTIONS (1)
  - Gout [Recovered/Resolved]

NARRATIVE: CASE EVENT DATE: 20220801
